FAERS Safety Report 4284175-3 (Version None)
Quarter: 2004Q1

REPORT INFORMATION
  Report Type: 
  Country: None (occurrence: None)
  Receive Date: 20040130
  Receipt Date: 20040120
  Transmission Date: 20041129
  Serious: Yes (Hospitalization)
  Sender: FDA-Public Use
  Company Number: 2004195654DE

PATIENT
  Age: 68 Year
  Sex: Female

DRUGS (3)
  1. EPIRUBICIN [Suspect]
     Indication: BREAST CANCER
     Dosage: 86 MG, CYCLIC, IV
     Route: 042
     Dates: start: 20031223, end: 20031230
  2. FLUOROURACIL [Suspect]
     Indication: BREAST CANCER
     Dosage: 716 MG, CYCLIC, IV
     Route: 042
     Dates: start: 20031223, end: 20031230
  3. CYCLOPHOSPHAMIDE [Suspect]
     Indication: BREAST CANCER
     Dosage: 100 MG, CYCLIC, ORAL
     Route: 048
     Dates: start: 20031223, end: 20040105

REACTIONS (2)
  - DYSPNOEA [None]
  - THROMBOSIS [None]
